FAERS Safety Report 20804173 (Version 1)
Quarter: 2022Q2

REPORT INFORMATION
  Report Type: Other
  Country: BG (occurrence: None)
  Receive Date: 20220509
  Receipt Date: 20220509
  Transmission Date: 20220721
  Serious: Yes (Death)
  Sender: FDA-Public Use
  Company Number: BG-ROCHE-3090846

PATIENT
  Age: 68 Year
  Sex: Female

DRUGS (7)
  1. BEVACIZUMAB [Suspect]
     Active Substance: BEVACIZUMAB
     Indication: Adenocarcinoma
     Dosage: DISCONTINUED AFTER COMPLETING 8 TREATMENT CYCLES
     Route: 065
     Dates: start: 2014
  2. BEVACIZUMAB [Suspect]
     Active Substance: BEVACIZUMAB
     Indication: Metastases to peritoneum
  3. BEVACIZUMAB [Suspect]
     Active Substance: BEVACIZUMAB
     Indication: Metastases to pleura
  4. CARBOPLATIN [Concomitant]
     Active Substance: CARBOPLATIN
     Indication: Adenocarcinoma
     Dosage: DISCONTINUED AFTER COMPLETING 8 TREATMENT CYCLES
     Dates: start: 2014
  5. PACLITAXEL [Concomitant]
     Active Substance: PACLITAXEL
     Indication: Adenocarcinoma
     Dosage: DISCONTINUED AFTER COMPLETING 8 TREATMENT CYCLES
     Dates: start: 2014
  6. OLAPARIB [Concomitant]
     Active Substance: OLAPARIB
     Indication: Adenocarcinoma
     Dosage: DISCONTINUED AFTER COMPLETING 8 TREATMENT CYCLES
     Dates: start: 2014
  7. AZACITIDINE [Concomitant]
     Active Substance: AZACITIDINE
     Indication: Adenocarcinoma
     Dosage: DISCONTINUED AFTER COMPLETING 8 TREATMENT CYCLES
     Dates: start: 202107

REACTIONS (1)
  - Myelodysplastic syndrome [Fatal]

NARRATIVE: CASE EVENT DATE: 20210501
